FAERS Safety Report 8520693-7 (Version None)
Quarter: 2012Q3

REPORT INFORMATION
  Report Type: 
  Country: None (occurrence: None)
  Receive Date: 20120719
  Receipt Date: 20120710
  Transmission Date: 20120928
  Serious: Yes (Disabling)
  Sender: FDA-Public Use
  Company Number: US-009507513-1207USA002736

PATIENT

DRUGS (1)
  1. ZOCOR [Suspect]
     Dosage: UNK

REACTIONS (3)
  - AMNESIA [None]
  - CONFUSIONAL STATE [None]
  - MYOPATHY [None]
